FAERS Safety Report 21211339 (Version 6)
Quarter: 2023Q2

REPORT INFORMATION
  Report Type: Spontaneous
  Country: US (occurrence: US)
  Receive Date: 20220815
  Receipt Date: 20230512
  Transmission Date: 20230722
  Serious: Yes (Hospitalization)
  Sender: FDA-Public Use
  Company Number: US-BIOGEN-2022BI01147431

PATIENT
  Age: 78 Year
  Sex: Female

DRUGS (1)
  1. TYSABRI [Suspect]
     Active Substance: NATALIZUMAB
     Indication: Multiple sclerosis
     Route: 050
     Dates: start: 20131107

REACTIONS (3)
  - Fall [Recovered/Resolved]
  - Multiple sclerosis relapse [Unknown]
  - Irritability [Unknown]

NARRATIVE: CASE EVENT DATE: 20220701
